FAERS Safety Report 5904931-2 (Version None)
Quarter: 2008Q4

REPORT INFORMATION
  Report Type: 
  Country: None (occurrence: None)
  Receive Date: 20081001
  Receipt Date: 20080916
  Transmission Date: 20090506
  Serious: Yes (Other)
  Sender: FDA-Public Use
  Company Number: JP-AVENTIS-200813064JP

PATIENT
  Age: 55 Year

DRUGS (1)
  1. OPTICLIK (INSULIN INJECTION PEN) [Suspect]

REACTIONS (3)
  - ANXIETY [None]
  - DEVICE MALFUNCTION [None]
  - NO ADVERSE EVENT [None]
